FAERS Safety Report 19267664 (Version 1)
Quarter: 2021Q2

REPORT INFORMATION
  Report Type: Spontaneous
  Country: US (occurrence: US)
  Receive Date: 20210517
  Receipt Date: 20210517
  Transmission Date: 20210717
  Serious: No
  Sender: FDA-Public Use
  Company Number: NVSC2021US107570

PATIENT
  Sex: Female

DRUGS (1)
  1. CIPROFLOXACIN HYDROCHLORIDE,DEXAMETHASONE [Suspect]
     Active Substance: CIPROFLOXACIN HYDROCHLORIDE\DEXAMETHASONE
     Indication: PRURITUS
     Dosage: 1 DF, QD (0.3+0.1% 7.5ML)
     Route: 065

REACTIONS (2)
  - Drug ineffective [Unknown]
  - Product quality issue [Unknown]
